FAERS Safety Report 7682411-4 (Version None)
Quarter: 2011Q3

REPORT INFORMATION
  Report Type: 
  Country: None (occurrence: None)
  Receive Date: 20110815
  Receipt Date: 20110804
  Transmission Date: 20111222
  Serious: Yes (Hospitalization)
  Sender: FDA-Public Use
  Company Number: JP-NOVOPROD-330155

PATIENT

DRUGS (20)
  1. CONIEL [Concomitant]
     Dosage: UNK
     Route: 048
     Dates: start: 20060808
  2. VICTOZA [Suspect]
     Dosage: 0.3 MG, QD
     Route: 058
     Dates: start: 20110623, end: 20110628
  3. LASIX [Concomitant]
     Dosage: UNK
     Route: 048
     Dates: start: 20040602
  4. TRICHLORMETHIAZIDE [Concomitant]
     Dosage: UNK
     Route: 048
     Dates: start: 20040602
  5. METFORMIN HCL [Concomitant]
     Indication: BLOOD GLUCOSE INCREASED
     Dosage: 500 MG, QD
     Route: 048
     Dates: start: 20110602
  6. VICTOZA [Suspect]
     Dosage: 0.6 MG, QD
     Route: 058
     Dates: start: 20110527
  7. AMLODIPINE [Concomitant]
     Dosage: UNK
     Route: 048
     Dates: start: 20040602
  8. NIZATIDINE [Concomitant]
     Dosage: UNK
     Route: 048
     Dates: start: 20040602, end: 20040617
  9. VICTOZA [Suspect]
     Dosage: 0.9 MG, QD
     Route: 058
     Dates: start: 20110531
  10. TENORMIN [Concomitant]
     Dosage: UNK
     Route: 048
     Dates: start: 20040602
  11. ARGAMATE [Concomitant]
     Dosage: UNK
     Route: 048
     Dates: start: 20041219, end: 20110630
  12. LIPITOR [Concomitant]
     Dosage: UNK
     Route: 048
     Dates: start: 20041219
  13. AMARYL [Concomitant]
     Indication: BLOOD GLUCOSE INCREASED
     Dosage: 0.5 MG, QD
     Route: 048
     Dates: start: 20110602, end: 20110608
  14. VICTOZA [Suspect]
     Indication: TYPE 2 DIABETES MELLITUS
     Dosage: 0.3 MG, QD
     Route: 058
     Dates: start: 20110524
  15. WARFARIN SODIUM [Concomitant]
  16. ASPIRIN [Concomitant]
     Route: 048
  17. MICARDIS [Concomitant]
     Dosage: UNK
     Route: 048
     Dates: start: 20061114
  18. ALLOPURINOL [Concomitant]
     Dosage: UNK
     Route: 048
     Dates: start: 20041219
  19. VICTOZA [Suspect]
     Dosage: 0.6 MG, QD
     Route: 058
     Dates: start: 20110613
  20. ALOSENN                            /00476901/ [Concomitant]
     Dosage: UNK
     Route: 048
     Dates: start: 20040602

REACTIONS (7)
  - HYPONATRAEMIA [None]
  - BLOOD GLUCOSE INCREASED [None]
  - NAUSEA [None]
  - ABDOMINAL DISCOMFORT [None]
  - DECREASED APPETITE [None]
  - INAPPROPRIATE ANTIDIURETIC HORMONE SECRETION [None]
  - HYPOGLYCAEMIA [None]
